FAERS Safety Report 20024852 (Version 1)
Quarter: 2021Q4

REPORT INFORMATION
  Report Type: Spontaneous
  Country: GB (occurrence: GB)
  Receive Date: 20211102
  Receipt Date: 20211102
  Transmission Date: 20220304
  Serious: Yes (Other)
  Sender: FDA-Public Use
  Company Number: None

PATIENT
  Age: 24 Year
  Sex: Female
  Weight: 85 kg

DRUGS (2)
  1. FEXOFENADINE HYDROCHLORIDE [Suspect]
     Active Substance: FEXOFENADINE HYDROCHLORIDE
     Indication: Allergy to animal
     Dosage: 120 MG, QD
     Route: 048
     Dates: start: 20211026, end: 20211027
  2. MICROGYNON 21 [Concomitant]
     Dosage: UNK

REACTIONS (6)
  - Migraine [Not Recovered/Not Resolved]
  - Lip dry [Not Recovered/Not Resolved]
  - Malaise [Not Recovered/Not Resolved]
  - Insomnia [Not Recovered/Not Resolved]
  - Nervousness [Not Recovered/Not Resolved]
  - Dizziness [Not Recovered/Not Resolved]

NARRATIVE: CASE EVENT DATE: 20211026
